FAERS Safety Report 16623115 (Version 1)
Quarter: 2019Q3

REPORT INFORMATION
  Report Type: Spontaneous
  Country: FR (occurrence: FR)
  Receive Date: 20190724
  Receipt Date: 20190724
  Transmission Date: 20191004
  Serious: Yes (Hospitalization)
  Sender: FDA-Public Use
  Company Number: FR-TEVA-2019-FR-1080365

PATIENT
  Age: 69 Year
  Sex: Male
  Weight: 63 kg

DRUGS (7)
  1. BISOCE [Concomitant]
     Active Substance: BISOPROLOL
  2. ETHAMBUTOL [Suspect]
     Active Substance: ETHAMBUTOL HYDROCHLORIDE
     Indication: ENDOCARDITIS
     Route: 048
     Dates: start: 20190207, end: 20190225
  3. RAMIPRIL. [Concomitant]
     Active Substance: RAMIPRIL
  4. ANSATIPINE 150 MG, GELULE [Suspect]
     Active Substance: RIFABUTIN
     Indication: ENDOCARDITIS
     Route: 048
     Dates: start: 20190207, end: 20190525
  5. FUROSEMIDE. [Concomitant]
     Active Substance: FUROSEMIDE
  6. CLARITHROMYCINE [Suspect]
     Active Substance: CLARITHROMYCIN
     Indication: ENDOCARDITIS
     Route: 048
     Dates: start: 20190207, end: 20190525
  7. KARDEGIC [Concomitant]
     Active Substance: ASPIRIN DL-LYSINE

REACTIONS (3)
  - Rash macular [Recovered/Resolved]
  - Cholestasis [Recovering/Resolving]
  - Pruritus [Recovered/Resolved]

NARRATIVE: CASE EVENT DATE: 201902
